FAERS Safety Report 18334118 (Version 2)
Quarter: 2021Q1

REPORT INFORMATION
  Report Type: Spontaneous
  Country: US (occurrence: US)
  Receive Date: 20201001
  Receipt Date: 20210301
  Transmission Date: 20210419
  Serious: No
  Sender: FDA-Public Use
  Company Number: US-SHIRE-US202031984

PATIENT
  Sex: Female
  Weight: 50 kg

DRUGS (4)
  1. MOTEGRITY [Suspect]
     Active Substance: PRUCALOPRIDE SUCCINATE
     Indication: GASTROINTESTINAL BACTERIAL OVERGROWTH
     Dosage: 2 MILLIGRAM, QD
     Route: 065
     Dates: start: 20200923
  2. MOTEGRITY [Suspect]
     Active Substance: PRUCALOPRIDE SUCCINATE
     Dosage: 2 MILLIGRAM, QD
     Route: 065
     Dates: start: 20210201
  3. LEVOTHYROXINE. [Concomitant]
     Active Substance: LEVOTHYROXINE
     Indication: THYROID DISORDER
  4. MAGNESIUM CITRATE. [Concomitant]
     Active Substance: MAGNESIUM CITRATE
     Indication: CONSTIPATION
     Dosage: UNK

REACTIONS (2)
  - Gastrointestinal bacterial overgrowth [Unknown]
  - Drug ineffective [Unknown]
